FAERS Safety Report 4389245-7 (Version None)
Quarter: 2004Q2

REPORT INFORMATION
  Report Type: 
  Country: None (occurrence: None)
  Receive Date: 20040624
  Receipt Date: 20040618
  Transmission Date: 20050107
  Serious: Yes (Hospitalization)
  Sender: FDA-Public Use
  Company Number: KII-2002-0011406

PATIENT
  Sex: Female

DRUGS (1)
  1. OXYCONTIN [Suspect]
     Indication: PAIN
     Dosage: Q2H; Q2H

REACTIONS (5)
  - ABASIA [None]
  - ACCIDENTAL OVERDOSE [None]
  - COMA [None]
  - MEDICATION ERROR [None]
  - MYOCARDIAL INFARCTION [None]
